FAERS Safety Report 10249833 (Version 1)
Quarter: 2014Q2

REPORT INFORMATION
  Report Type: Spontaneous
  Country: US (occurrence: None)
  Receive Date: 20140618
  Receipt Date: 20140618
  Transmission Date: 20141212
  Serious: No
  Sender: FDA-Public Use
  Company Number: CC14-0719

PATIENT
  Age: 50 Year
  Sex: Male
  Weight: 70.31 kg

DRUGS (1)
  1. METRONIDAZOLE [Suspect]
     Indication: ROSACEA
     Dosage: APPLY NIGHTLY X 2 WEKS
     Dates: start: 20140501, end: 20140523

REACTIONS (1)
  - Urine alcohol test positive [None]
